FAERS Safety Report 11070387 (Version 2)
Quarter: 2015Q2

REPORT INFORMATION
  Report Type: Report from Study
  Country: BR (occurrence: BR)
  Receive Date: 20150427
  Receipt Date: 20150512
  Transmission Date: 20150821
  Serious: Yes (Hospitalization, Other)
  Sender: FDA-Public Use
  Company Number: PHHY2015BR046744

PATIENT
  Sex: Male
  Weight: 60 kg

DRUGS (3)
  1. EXELON PATCH [Suspect]
     Active Substance: RIVASTIGMINE
     Indication: MEMORY IMPAIRMENT
     Dosage: 1 ADHESIVE, QD (EVERY DAY 8 PM)
     Route: 065
     Dates: end: 20150218
  2. EXELON PATCH [Suspect]
     Active Substance: RIVASTIGMINE
     Indication: DEMENTIA ALZHEIMER^S TYPE
  3. EXELON PATCH [Suspect]
     Active Substance: RIVASTIGMINE
     Indication: TREMOR

REACTIONS (4)
  - Pneumonia [Recovered/Resolved]
  - Weight increased [Unknown]
  - Dementia Alzheimer^s type [Unknown]
  - Drug ineffective [Unknown]
